FAERS Safety Report 9208012 (Version 1)
Quarter: 2013Q2

REPORT INFORMATION
  Report Type: Spontaneous
  Country: US (occurrence: US)
  Receive Date: 20130403
  Receipt Date: 20130403
  Transmission Date: 20140414
  Serious: No
  Sender: FDA-Public Use
  Company Number: US-ASTRAZENECA-2013SE17243

PATIENT
  Age: 66 Year
  Sex: Female

DRUGS (1)
  1. PULMICORT RESPULES [Suspect]
     Indication: ASTHMA
     Route: 055
     Dates: start: 2009

REACTIONS (6)
  - Weight decreased [Unknown]
  - Hypotension [Unknown]
  - Osteoporosis [Unknown]
  - Hypertension [Unknown]
  - Feeling abnormal [Unknown]
  - Off label use [Unknown]
